FAERS Safety Report 15856146 (Version 1)
Quarter: 2019Q1

REPORT INFORMATION
  Report Type: Report from Study
  Country: None (occurrence: US)
  Receive Date: 20190123
  Receipt Date: 20190123
  Transmission Date: 20190417
  Serious: Yes (Hospitalization, Other)
  Sender: FDA-Public Use
  Company Number: US-ABBVIE-17K-163-2034772-00

PATIENT
  Age: 64 Year
  Sex: Female
  Weight: 73.55 kg

DRUGS (11)
  1. HUMIRA [Suspect]
     Active Substance: ADALIMUMAB
     Route: 058
     Dates: start: 2016, end: 2016
  2. PLAQUENIL [Concomitant]
     Active Substance: HYDROXYCHLOROQUINE SULFATE
     Indication: PRODUCT USED FOR UNKNOWN INDICATION
  3. CYMBALTA [Concomitant]
     Active Substance: DULOXETINE HYDROCHLORIDE
     Indication: PRODUCT USED FOR UNKNOWN INDICATION
  4. LOSARTAN. [Concomitant]
     Active Substance: LOSARTAN
     Indication: BLOOD PRESSURE MEASUREMENT
  5. CALCIUM [Concomitant]
     Active Substance: CALCIUM
     Indication: PRODUCT USED FOR UNKNOWN INDICATION
  6. HUMIRA [Suspect]
     Active Substance: ADALIMUMAB
     Route: 058
     Dates: start: 2017, end: 2017
  7. MACROBID [Concomitant]
     Active Substance: NITROFURANTOIN\NITROFURANTOIN MONOHYDRATE
     Indication: PROPHYLAXIS
  8. HUMIRA [Suspect]
     Active Substance: ADALIMUMAB
     Indication: ANKYLOSING SPONDYLITIS
     Route: 058
     Dates: start: 2007, end: 201607
  9. VITAMIN B [Concomitant]
     Active Substance: VITAMIN B
     Indication: VITAMIN B COMPLEX DEFICIENCY
  10. CIMZIA [Concomitant]
     Active Substance: CERTOLIZUMAB PEGOL
     Indication: PRODUCT USED FOR UNKNOWN INDICATION
  11. VITAMIN D [Concomitant]
     Active Substance: CHOLECALCIFEROL
     Indication: PRODUCT USED FOR UNKNOWN INDICATION

REACTIONS (21)
  - Procedural pain [Recovered/Resolved]
  - Rash generalised [Recovered/Resolved]
  - Arthralgia [Recovered/Resolved]
  - Intervertebral disc protrusion [Recovered/Resolved]
  - Procedural pain [Recovered/Resolved]
  - Lupus-like syndrome [Recovered/Resolved]
  - Calcinosis [Recovered/Resolved]
  - Arthropathy [Recovered/Resolved]
  - Mobility decreased [Recovered/Resolved]
  - Swelling of eyelid [Recovered/Resolved]
  - Spinal column stenosis [Recovered/Resolved]
  - Fall [Recovered/Resolved]
  - Gait disturbance [Recovered/Resolved]
  - Rash [Recovered/Resolved]
  - Urticaria [Recovered/Resolved]
  - Patella fracture [Recovered/Resolved]
  - Arthritis [Recovered/Resolved]
  - Joint lock [Recovered/Resolved]
  - Procedural pain [Recovered/Resolved]
  - Urticaria [Recovered/Resolved]
  - Back pain [Recovered/Resolved]

NARRATIVE: CASE EVENT DATE: 2016
